FAERS Safety Report 9134751 (Version 3)
Quarter: 2013Q3

REPORT INFORMATION
  Report Type: Report from Study
  Country: US (occurrence: US)
  Receive Date: 20130304
  Receipt Date: 20130719
  Transmission Date: 20140515
  Serious: Yes (Hospitalization, Disabling, Other)
  Sender: FDA-Public Use
  Company Number: PHEH2013US005015

PATIENT
  Age: 50 Year
  Sex: Female
  Weight: 54.88 kg

DRUGS (7)
  1. GILENYA [Suspect]
     Indication: RELAPSING-REMITTING MULTIPLE SCLEROSIS
     Dosage: 0.5 MG, QD
     Route: 048
     Dates: start: 20120919, end: 20130411
  2. TEMAZEPAM [Concomitant]
     Dosage: 30 MG, QD
  3. PREMARIN [Concomitant]
     Dosage: 0.625 MG, QD
  4. LUNESTA [Concomitant]
     Dosage: 3 MG, QHS
  5. VITAMIN B12 [Concomitant]
  6. VIT D [Concomitant]
  7. ZONEGRAN [Concomitant]
     Dosage: 200 MG, QHS

REACTIONS (7)
  - Breast cancer [Not Recovered/Not Resolved]
  - White blood cell count decreased [Unknown]
  - Burning sensation [Unknown]
  - Pain [Unknown]
  - Paraesthesia [Unknown]
  - Alopecia [Unknown]
  - Blood pressure increased [Unknown]
